FAERS Safety Report 17419982 (Version 1)
Quarter: 2020Q1

REPORT INFORMATION
  Report Type: Spontaneous
  Country: US (occurrence: US)
  Receive Date: 20200214
  Receipt Date: 20200214
  Transmission Date: 20200409
  Serious: No
  Sender: FDA-Public Use
  Company Number: US-BAUSCH-BL-2020-004155

PATIENT
  Sex: Female
  Weight: 74.91 kg

DRUGS (1)
  1. LUMIFY [Suspect]
     Active Substance: BRIMONIDINE TARTRATE
     Indication: OCULAR HYPERAEMIA
     Dosage: START DATE: ABOUT 2 MONTHS AGO, TWO DROPS IN EACH EYE DAILY IN THE MORNINGS
     Route: 047
     Dates: start: 201912, end: 20200205

REACTIONS (2)
  - Product quality issue [Unknown]
  - Drug ineffective [Unknown]
